FAERS Safety Report 5683559-6 (Version None)
Quarter: 2008Q1

REPORT INFORMATION
  Report Type: 
  Country: None (occurrence: None)
  Receive Date: 20080326
  Receipt Date: 20070621
  Transmission Date: 20080703
  Serious: Yes (Death)
  Sender: FDA-Public Use
  Company Number: 6034887

PATIENT
  Age: 64 Year
  Sex: Male

DRUGS (1)
  1. GLUCOPHAGE [Suspect]
     Indication: DIABETES MELLITUS
     Dosage: 1000 MG ORAL
     Route: 048
     Dates: start: 20041218

REACTIONS (3)
  - LACTIC ACIDOSIS [None]
  - METABOLIC ACIDOSIS [None]
  - SHOCK [None]
